FAERS Safety Report 6364348-6 (Version None)
Quarter: 2009Q3

REPORT INFORMATION
  Report Type: 
  Country: None (occurrence: None)
  Receive Date: 20090919
  Receipt Date: 20090720
  Transmission Date: 20100115
  Serious: No
  Sender: FDA-Public Use
  Company Number: US-ABBOTT-09P-163-0586404-00

PATIENT
  Sex: Female
  Weight: 54.48 kg

DRUGS (2)
  1. HUMIRA [Suspect]
     Indication: CROHN'S DISEASE
     Dates: start: 20071231, end: 20090630
  2. HUMIRA [Suspect]
     Dates: start: 20090713

REACTIONS (2)
  - GASTRIC DISORDER [None]
  - RASH ERYTHEMATOUS [None]
